FAERS Safety Report 12498885 (Version 2)
Quarter: 2016Q2

REPORT INFORMATION
  Report Type: Spontaneous
  Country: BR (occurrence: BR)
  Receive Date: 20160627
  Receipt Date: 20160630
  Transmission Date: 20160815
  Serious: Yes (Hospitalization, Other)
  Sender: FDA-Public Use
  Company Number: BR-PFIZER INC-2016309315

PATIENT
  Age: 32 Year
  Sex: Female
  Weight: 103 kg

DRUGS (8)
  1. METFORMIN [Concomitant]
     Active Substance: METFORMIN HYDROCHLORIDE
     Dosage: UNK
     Dates: start: 2012
  2. PAROXETINE. [Concomitant]
     Active Substance: PAROXETINE
     Dosage: STRENGTH 20 MG
     Dates: start: 2010
  3. INSULIN NPH /01223208/ [Concomitant]
     Dosage: UNK
     Dates: start: 2012
  4. GEODON [Suspect]
     Active Substance: ZIPRASIDONE HYDROCHLORIDE\ZIPRASIDONE MESYLATE
     Indication: BORDERLINE PERSONALITY DISORDER
     Dosage: 80 MG, 2X/DAY
     Dates: end: 201605
  5. GEODON [Suspect]
     Active Substance: ZIPRASIDONE HYDROCHLORIDE\ZIPRASIDONE MESYLATE
     Indication: IMPULSIVE BEHAVIOUR
     Dosage: 80 MG, 1X/DAY, ONE AT NIGHT
     Dates: start: 2016, end: 2016
  6. GEODON [Suspect]
     Active Substance: ZIPRASIDONE HYDROCHLORIDE\ZIPRASIDONE MESYLATE
     Dosage: 160 MG, DAILY, 2 CAPSULES DAILY
     Dates: start: 2016, end: 20160617
  7. ZOLPIDEM [Concomitant]
     Active Substance: ZOLPIDEM\ZOLPIDEM TARTRATE
     Dosage: STRENGTH 10 MG
     Dates: start: 2010
  8. GLICAZIDA [Concomitant]
     Active Substance: GLICLAZIDE
     Dosage: UNK
     Dates: start: 2012

REACTIONS (24)
  - Suicidal ideation [Not Recovered/Not Resolved]
  - Tachycardia [Recovered/Resolved]
  - Dyspnoea [Recovered/Resolved]
  - Cold sweat [Recovered/Resolved]
  - Diabetic metabolic decompensation [Unknown]
  - Suicide attempt [Recovered/Resolved]
  - Hallucination [Recovered/Resolved]
  - Chest pain [Recovered/Resolved]
  - Drug withdrawal syndrome [Recovered/Resolved]
  - Depression [Not Recovered/Not Resolved]
  - Diabetes mellitus [Unknown]
  - Mydriasis [Recovered/Resolved]
  - Anxiety [Recovered/Resolved]
  - Product use issue [Unknown]
  - Pneumonia [Unknown]
  - Depersonalisation/derealisation disorder [Recovered/Resolved]
  - Pancreatic disorder [Unknown]
  - Weight increased [Unknown]
  - Confusional state [Recovered/Resolved]
  - Derealisation [Recovered/Resolved]
  - Paranoia [Recovered/Resolved]
  - Tremor [Recovered/Resolved]
  - Malaise [Recovered/Resolved]
  - Insomnia [Recovered/Resolved]

NARRATIVE: CASE EVENT DATE: 2008
